FAERS Safety Report 23959011 (Version 2)
Quarter: 2024Q3

REPORT INFORMATION
  Report Type: Spontaneous
  Country: JP (occurrence: JP)
  Receive Date: 20240611
  Receipt Date: 20240813
  Transmission Date: 20241017
  Serious: Yes (Other)
  Sender: JOHNSON AND JOHNSON
  Company Number: JP-JNJFOC-20240624791

PATIENT
  Age: 63 Year
  Sex: Female
  Weight: 91 kg

DRUGS (5)
  1. TREMFYA [Suspect]
     Active Substance: GUSELKUMAB
     Indication: Psoriasis
     Dosage: DOSE UNKNOWN
     Route: 058
     Dates: start: 202001, end: 2020
  2. TREMFYA [Suspect]
     Active Substance: GUSELKUMAB
     Dosage: DOSE UNKNOWN
     Route: 058
     Dates: start: 202006
  3. TREMFYA [Suspect]
     Active Substance: GUSELKUMAB
  4. ETRETINATE [Concomitant]
     Active Substance: ETRETINATE
     Indication: Psoriasis
     Route: 065
     Dates: start: 2020
  5. SKYRIZI [Concomitant]
     Active Substance: RISANKIZUMAB-RZAA
     Indication: Psoriasis
     Dosage: DOSE UNKNOWN
     Route: 065
     Dates: start: 202212

REACTIONS (1)
  - Colon cancer [Unknown]

NARRATIVE: CASE EVENT DATE: 20200101
